FAERS Safety Report 4502233-2 (Version None)
Quarter: 2004Q4

REPORT INFORMATION
  Report Type: 
  Country: None (occurrence: None)
  Receive Date: 20041116
  Receipt Date: 20041104
  Transmission Date: 20050328
  Serious: Yes (Hospitalization)
  Sender: FDA-Public Use
  Company Number: FR-JNJFOC-20041101665

PATIENT
  Age: 56 Year
  Sex: Female

DRUGS (15)
  1. TOPALGIC [Suspect]
     Indication: RHEUMATOID ARTHRITIS
     Route: 049
  2. ARAVA [Suspect]
     Route: 049
  3. ARAVA [Suspect]
     Indication: RHEUMATOID ARTHRITIS
     Route: 049
  4. CORTANCYL [Suspect]
     Indication: DRUG USE FOR UNKNOWN INDICATION
     Route: 049
  5. DUPHALAC [Suspect]
     Indication: DRUG USE FOR UNKNOWN INDICATION
     Route: 049
  6. JOSIR [Suspect]
     Indication: DRUG USE FOR UNKNOWN INDICATION
     Route: 049
  7. ACTONEL [Suspect]
     Indication: DRUG USE FOR UNKNOWN INDICATION
     Route: 049
  8. TENORMIN [Concomitant]
     Route: 049
  9. LUTERAN [Concomitant]
     Route: 049
  10. ALDACTONE [Concomitant]
     Route: 049
  11. OMEPRAZOLE [Concomitant]
     Route: 049
  12. PROZAC [Concomitant]
     Route: 049
  13. DERMESTRIL [Concomitant]
     Route: 062
  14. ACETAMINOPHEN [Concomitant]
     Route: 049
  15. DIFFU K [Concomitant]
     Route: 049

REACTIONS (8)
  - ARTHRITIS BACTERIAL [None]
  - ASPARTATE AMINOTRANSFERASE INCREASED [None]
  - CHOLESTASIS [None]
  - GAMMA-GLUTAMYLTRANSFERASE INCREASED [None]
  - HEPATOCELLULAR DAMAGE [None]
  - HYPOPROTEINAEMIA [None]
  - LOCALISED INFECTION [None]
  - OSTEITIS [None]
